FAERS Safety Report 20685269 (Version 1)
Quarter: 2022Q2

REPORT INFORMATION
  Report Type: Spontaneous
  Country: US (occurrence: None)
  Receive Date: 20220406
  Receipt Date: 20220406
  Transmission Date: 20220721
  Serious: Yes (Other)
  Sender: FDA-Public Use
  Company Number: None

PATIENT
  Age: 46 Year
  Sex: Female
  Weight: 45 kg

DRUGS (1)
  1. MEDROXYPROGESTERONE [Suspect]
     Active Substance: MEDROXYPROGESTERONE
     Indication: Contraception
     Dosage: OTHER QUANTITY : 1 INJECTION(S);?OTHER FREQUENCY : EVERY 3 MONTHS;?
     Route: 030
     Dates: start: 20220302

REACTIONS (7)
  - Memory impairment [None]
  - Fatigue [None]
  - Depression [None]
  - Fatigue [None]
  - Asthenia [None]
  - Apathy [None]
  - Depressed level of consciousness [None]

NARRATIVE: CASE EVENT DATE: 20220302
